FAERS Safety Report 10004753 (Version 1)
Quarter: 2014Q1

REPORT INFORMATION
  Report Type: Report from Study
  Country: CA (occurrence: CA)
  Receive Date: 20140312
  Receipt Date: 20140312
  Transmission Date: 20141002
  Serious: Yes (Other)
  Sender: FDA-Public Use
  Company Number: CA-JNJFOC-20140303593

PATIENT
  Age: 66 Year
  Sex: Female
  Weight: 58.8 kg

DRUGS (9)
  1. REMICADE [Suspect]
     Indication: CROHN^S DISEASE
     Route: 042
     Dates: start: 20140109
  2. REMICADE [Suspect]
     Indication: CROHN^S DISEASE
     Route: 042
     Dates: start: 20100417
  3. CARDIZEM [Concomitant]
     Route: 065
  4. RABEPRAZOLE [Concomitant]
     Route: 065
  5. ATIVAN [Concomitant]
     Route: 065
  6. CLIMARA [Concomitant]
     Route: 065
  7. ADVAIR [Concomitant]
     Route: 065
  8. CIPROLEX [Concomitant]
     Route: 065
  9. PROPANOLOL HCL [Concomitant]
     Route: 065

REACTIONS (1)
  - Colitis [Recovered/Resolved]
